FAERS Safety Report 4613286-5 (Version None)
Quarter: 2005Q1

REPORT INFORMATION
  Report Type: 
  Country: None (occurrence: None)
  Receive Date: 20050315
  Receipt Date: 20030516
  Transmission Date: 20050727
  Serious: Yes (Life-Threatening)
  Sender: FDA-Public Use
  Company Number: 5318

PATIENT
  Sex: Male

DRUGS (4)
  1. ATRACURIUM BESYLATE [Suspect]
     Indication: MUSCLE RELAXANT THERAPY
     Dosage: 1077 MICROGRAM FREQ, IV
     Route: 042
  2. DIAMORPHINE [Concomitant]
  3. BENZYLPENICILLIN [Concomitant]
  4. GENTAMICIN [Concomitant]

REACTIONS (2)
  - BRADYCARDIA NEONATAL [None]
  - NEONATAL HYPOXIA [None]
